FAERS Safety Report 6774084-X (Version None)
Quarter: 2010Q2

REPORT INFORMATION
  Report Type: 
  Country: None (occurrence: None)
  Receive Date: 20100616
  Receipt Date: 20100616
  Transmission Date: 20101027
  Serious: Yes (Life-Threatening, Disabling, Other)
  Sender: FDA-Public Use
  Company Number: None

PATIENT
  Age: 66 Year
  Sex: Female
  Weight: 63.9572 kg

DRUGS (2)
  1. DEXILANT [Suspect]
     Indication: COUGH
     Dosage: 1 TAB 30 MIN B4 BREAKFAST 1 X PER DAY PO
     Route: 048
     Dates: start: 20100302, end: 20100612
  2. DEXILANT [Suspect]
     Indication: GASTROOESOPHAGEAL REFLUX DISEASE
     Dosage: 1 TAB 30 MIN B4 BREAKFAST 1 X PER DAY PO
     Route: 048
     Dates: start: 20100302, end: 20100612

REACTIONS (9)
  - BLOOD GLUCOSE INCREASED [None]
  - DIARRHOEA [None]
  - DIZZINESS [None]
  - EXTRASYSTOLES [None]
  - GLUCOSE TOLERANCE IMPAIRED [None]
  - HEART RATE IRREGULAR [None]
  - MALAISE [None]
  - NOCTURIA [None]
  - TERMINAL INSOMNIA [None]
